FAERS Safety Report 8202122-6 (Version None)
Quarter: 2012Q1

REPORT INFORMATION
  Report Type: 
  Country: None (occurrence: None)
  Receive Date: 20120312
  Receipt Date: 20120302
  Transmission Date: 20120608
  Serious: Yes (Hospitalization, Other)
  Sender: FDA-Public Use
  Company Number: US-BAYER-2011-074180

PATIENT
  Age: 46 Year
  Sex: Female
  Weight: 97.506 kg

DRUGS (2)
  1. VESICARE [Concomitant]
  2. YAZ [Suspect]
     Indication: CONTRACEPTION
     Dosage: UNK
     Dates: start: 20060101, end: 20090101

REACTIONS (7)
  - GALLBLADDER DISORDER [None]
  - CHOLECYSTITIS ACUTE [None]
  - BILE DUCT STONE [None]
  - PAIN [None]
  - ANHEDONIA [None]
  - ANXIETY [None]
  - EMOTIONAL DISTRESS [None]
